FAERS Safety Report 17166285 (Version 1)
Quarter: 2019Q4

REPORT INFORMATION
  Report Type: Spontaneous
  Country: US (occurrence: US)
  Receive Date: 20191217
  Receipt Date: 20191217
  Transmission Date: 20200122
  Serious: Yes (Life-Threatening, Other)
  Sender: FDA-Public Use
  Company Number: US-FRESENIUS KABI-FK201913991

PATIENT
  Sex: Male

DRUGS (4)
  1. FUROSEMIDE (MANUFACTURER UNKNOWN) [Suspect]
     Active Substance: FUROSEMIDE
     Indication: CARDIAC ARREST
  2. GLYCERYL TRINITRATE [Suspect]
     Active Substance: NITROGLYCERIN
     Indication: CARDIAC ARREST
  3. FUROSEMIDE (MANUFACTURER UNKNOWN) [Suspect]
     Active Substance: FUROSEMIDE
     Indication: PERIPARTUM CARDIOMYOPATHY
     Route: 064
  4. GLYCERYL TRINITRATE [Suspect]
     Active Substance: NITROGLYCERIN
     Indication: PERIPARTUM CARDIOMYOPATHY
     Route: 064

REACTIONS (5)
  - Apnoea [Recovered/Resolved]
  - Foetal exposure during pregnancy [Recovered/Resolved]
  - Unresponsive to stimuli [Recovered/Resolved]
  - Bradycardia foetal [Recovered/Resolved]
  - Pulse absent [Recovered/Resolved]
